FAERS Safety Report 13049559 (Version 1)
Quarter: 2016Q4

REPORT INFORMATION
  Report Type: Spontaneous
  Country: US (occurrence: US)
  Receive Date: 20161221
  Receipt Date: 20161221
  Transmission Date: 20170207
  Serious: No
  Sender: FDA-Public Use
  Company Number: US-TEVA-715561ACC

PATIENT
  Sex: Female
  Weight: 70.37 kg

DRUGS (1)
  1. TAKE ACTION [Suspect]
     Active Substance: LEVONORGESTREL
     Indication: POST COITAL CONTRACEPTION
     Dates: start: 20161104, end: 20161104

REACTIONS (5)
  - Vulvovaginal swelling [Recovered/Resolved]
  - Vulvovaginal discomfort [Recovered/Resolved]
  - Vulvovaginal pruritus [Recovered/Resolved]
  - Vaginal haemorrhage [Recovered/Resolved]
  - Fungal infection [Unknown]
